FAERS Safety Report 9851896 (Version 2)
Quarter: 2014Q1

REPORT INFORMATION
  Report Type: Spontaneous
  Country: FR (occurrence: FR)
  Receive Date: 20140129
  Receipt Date: 20140304
  Transmission Date: 20141002
  Serious: Yes (Hospitalization, Other)
  Sender: FDA-Public Use
  Company Number: FR-ELI_LILLY_AND_COMPANY-FR201401006000

PATIENT
  Age: 72 Year
  Sex: Male

DRUGS (4)
  1. ZYPREXA [Suspect]
     Indication: DELIRIUM
     Dosage: 15 MG, QD
     Route: 048
     Dates: start: 20131207, end: 20131207
  2. LOXAPAC /00401801/ [Suspect]
     Indication: DELIRIUM
     Dosage: 90 MG, QD
     Route: 048
     Dates: start: 20131208, end: 20131208
  3. HALDOL /00027401/ [Suspect]
     Indication: DELIRIUM
     Dosage: 50 GTT, UNKNOWN
     Route: 048
     Dates: start: 20131212, end: 20131212
  4. RISPERDAL [Suspect]
     Indication: DELIRIUM
     Dosage: 2 MG, QD
     Route: 048
     Dates: start: 20131213, end: 20131213

REACTIONS (6)
  - Renal failure [Unknown]
  - Parkinsonism [Recovered/Resolved]
  - Blood pressure abnormal [Unknown]
  - Stupor [Recovering/Resolving]
  - Hyperhidrosis [Unknown]
  - Drug ineffective [Unknown]
